FAERS Safety Report 15403323 (Version 6)
Quarter: 2019Q3

REPORT INFORMATION
  Report Type: Report from Study
  Country: US (occurrence: US)
  Receive Date: 20180919
  Receipt Date: 20190730
  Transmission Date: 20191004
  Serious: Yes (Death, Hospitalization)
  Sender: FDA-Public Use
  Company Number: US-EXELIXIS-XL18418015952

PATIENT
  Age: 90 Year
  Sex: Male
  Weight: 80.1 kg

DRUGS (18)
  1. COMPAZINE [Concomitant]
     Active Substance: PROCHLORPERAZINE MALEATE
  2. ASPIRIN. [Concomitant]
     Active Substance: ASPIRIN
  3. LOTRIMIN [Concomitant]
     Active Substance: CLOTRIMAZOLE
  4. LOVENOX [Concomitant]
     Active Substance: ENOXAPARIN SODIUM
  5. LASIX [Concomitant]
     Active Substance: FUROSEMIDE
  6. ALDACTONE [Concomitant]
     Active Substance: SPIRONOLACTONE
  7. ZOFRAN [Concomitant]
     Active Substance: ONDANSETRON HYDROCHLORIDE
  8. CALCIUM [Concomitant]
     Active Substance: CALCIUM
  9. FLOMAX [Concomitant]
     Active Substance: TAMSULOSIN HYDROCHLORIDE
  10. IMDUR [Concomitant]
     Active Substance: ISOSORBIDE MONONITRATE
  11. VESICARE [Concomitant]
     Active Substance: SOLIFENACIN SUCCINATE
  12. OXYCODONE [Concomitant]
     Active Substance: OXYCODONE
  13. XL184 [Suspect]
     Active Substance: CABOZANTINIB
     Indication: HORMONE-REFRACTORY PROSTATE CANCER
     Dosage: 40 MG, QD
     Route: 048
     Dates: start: 20180820
  14. ATEZOLIZUMAB. [Suspect]
     Active Substance: ATEZOLIZUMAB
     Indication: HORMONE-REFRACTORY PROSTATE CANCER
     Dosage: 1200 MG, Q3WEEKS
     Route: 042
     Dates: start: 20180820, end: 20180820
  15. NEURONTIN [Concomitant]
     Active Substance: GABAPENTIN
  16. AMLACTIN [Concomitant]
     Active Substance: AMMONIUM LACTATE
  17. ZESTRIL [Concomitant]
     Active Substance: LISINOPRIL
  18. POTASSIUM CHLORIDE. [Concomitant]
     Active Substance: POTASSIUM CHLORIDE

REACTIONS (4)
  - Fatigue [Recovered/Resolved]
  - Mental status changes [Recovered/Resolved]
  - Acute kidney injury [Recovered/Resolved]
  - Dehydration [Fatal]

NARRATIVE: CASE EVENT DATE: 20180905
